FAERS Safety Report 9790061 (Version 1)
Quarter: 2013Q4

REPORT INFORMATION
  Report Type: Spontaneous
  Country: US (occurrence: None)
  Receive Date: 20131230
  Receipt Date: 20131230
  Transmission Date: 20140711
  Serious: Yes (Other)
  Sender: FDA-Public Use
  Company Number: None

PATIENT
  Sex: 0

DRUGS (3)
  1. PEGYLATED INTERFERON [Suspect]
     Indication: CHRONIC HEPATITIS C
  2. RIBAVIRIN [Suspect]
  3. BOCEPREVIR [Suspect]

REACTIONS (4)
  - Tooth fracture [None]
  - Gingivitis [None]
  - Alopecia [None]
  - Hair texture abnormal [None]
